FAERS Safety Report 7452375-7 (Version None)
Quarter: 2011Q2

REPORT INFORMATION
  Report Type: 
  Country: None (occurrence: None)
  Receive Date: 20110425
  Receipt Date: 20110412
  Transmission Date: 20111010
  Serious: Yes (Other)
  Sender: FDA-Public Use
  Company Number: 2011MA004158

PATIENT
  Age: 31 Year
  Sex: Female

DRUGS (10)
  1. EPIRUBICIN HYDROCHLORIDE [Suspect]
     Indication: BREAST CANCER
     Dates: end: 20090101
  2. ZOLADEX [Suspect]
     Indication: BREAST CANCER
     Dosage: SC
     Route: 058
  3. FLUOROURACIL [Suspect]
     Indication: BREAST CANCER
     Dates: end: 20090101
  4. CAPECITABINE [Concomitant]
  5. CYCLOPHOSPHAMIDE [Suspect]
     Indication: BREAST CANCER
     Dates: end: 20090101
  6. LETROZOLE [Concomitant]
  7. OXALIPLATIN [Concomitant]
  8. TAMOXIFEN CITRATE [Suspect]
     Indication: BREAST CANCER
     Dosage: PO
     Route: 048
     Dates: end: 20100101
  9. ZOMETA [Concomitant]
  10. DOCETAXEL [Concomitant]

REACTIONS (2)
  - DISEASE PROGRESSION [None]
  - BONE LESION [None]
